FAERS Safety Report 7107345-5 (Version None)
Quarter: 2010Q4

REPORT INFORMATION
  Report Type: 
  Country: None (occurrence: None)
  Receive Date: 20101112
  Receipt Date: 20101112
  Transmission Date: 20110411
  Serious: No
  Sender: FDA-Public Use
  Company Number: None

PATIENT
  Sex: Male
  Weight: 79.3795 kg

DRUGS (3)
  1. LISINOPRIL [Suspect]
     Indication: BLOOD PRESSURE ABNORMAL
     Dosage: ONE TABL 10 MG ONE A DAY ORAL
     Route: 048
     Dates: start: 20101103
  2. SIMVASTATIN [Concomitant]
  3. DILTIAZEM [Concomitant]

REACTIONS (2)
  - ERYTHEMA [None]
  - RASH [None]
